FAERS Safety Report 4763531-0 (Version None)
Quarter: 2005Q3

REPORT INFORMATION
  Report Type: 
  Country: None (occurrence: None)
  Receive Date: 20050908
  Receipt Date: 20050830
  Transmission Date: 20060218
  Serious: Yes (Hospitalization)
  Sender: FDA-Public Use
  Company Number: FR-JNJFOC-20050900717

PATIENT
  Age: 77 Year
  Sex: Female

DRUGS (2)
  1. TOPALGIC [Suspect]
     Indication: DRUG USE FOR UNKNOWN INDICATION
     Route: 048
  2. DOLIPRANE [Concomitant]
     Route: 065

REACTIONS (6)
  - AGITATION [None]
  - CEREBRAL ATROPHY [None]
  - CONFUSIONAL STATE [None]
  - DISORIENTATION [None]
  - FALL [None]
  - HUMERUS FRACTURE [None]
